FAERS Safety Report 23731910 (Version 1)
Quarter: 2024Q2

REPORT INFORMATION
  Report Type: Other
  Country: US (occurrence: None)
  Receive Date: 20240411
  Receipt Date: 20240411
  Transmission Date: 20240715
  Serious: Yes (Other)
  Sender: FDA-Public Use
  Company Number: US-ROCHE-3544230

PATIENT
  Age: 37 Year
  Sex: Female

DRUGS (9)
  1. BEVACIZUMAB [Suspect]
     Active Substance: BEVACIZUMAB
     Indication: Non-small cell lung cancer
     Route: 065
  2. ATEZOLIZUMAB [Suspect]
     Active Substance: ATEZOLIZUMAB
     Indication: Non-small cell lung cancer
     Route: 065
  3. CARBOPLATIN [Suspect]
     Active Substance: CARBOPLATIN
     Indication: Non-small cell lung cancer
     Route: 065
  4. CARBOPLATIN\PACLITAXEL [Suspect]
     Active Substance: CARBOPLATIN\PACLITAXEL
     Indication: Non-small cell lung cancer
     Route: 065
  5. CRIZOTINIB [Concomitant]
     Active Substance: CRIZOTINIB
  6. ENTRECTINIB [Concomitant]
     Active Substance: ENTRECTINIB
  7. CARBOPLATIN [Concomitant]
     Active Substance: CARBOPLATIN
  8. PEMETREXED [Concomitant]
     Active Substance: PEMETREXED
  9. LORLATINIB [Concomitant]
     Active Substance: LORLATINIB

REACTIONS (2)
  - Cerebrovascular accident [Unknown]
  - Deep vein thrombosis [Unknown]
